FAERS Safety Report 9762941 (Version 1)
Quarter: 2013Q4

REPORT INFORMATION
  Report Type: Report from Study
  Country: US (occurrence: US)
  Receive Date: 20131216
  Receipt Date: 20131216
  Transmission Date: 20140711
  Serious: Yes (Death)
  Sender: FDA-Public Use
  Company Number: US-BAXTER-2013BAX050853

PATIENT
  Age: 48 Year
  Sex: Female

DRUGS (2)
  1. CYCLOPHOSPHAMIDE FOR INJECTION, USP [Suspect]
     Indication: PLEURAL MESOTHELIOMA
     Route: 065
  2. PENTOSTATIN [Suspect]
     Indication: PLEURAL MESOTHELIOMA
     Route: 065

REACTIONS (1)
  - Disease progression [Fatal]
